FAERS Safety Report 20161106 (Version 1)
Quarter: 2021Q4

REPORT INFORMATION
  Report Type: Spontaneous
  Country: MX (occurrence: MX)
  Receive Date: 20211208
  Receipt Date: 20211208
  Transmission Date: 20220303
  Serious: Yes (Other)
  Sender: FDA-Public Use
  Company Number: MX-ANIPHARMA-2021-MX-000041

PATIENT
  Age: 47 Year
  Sex: Male

DRUGS (3)
  1. CANDESARTAN CILEXETIL AND HYDROCHLOROTHIAZIDE [Suspect]
     Active Substance: CANDESARTAN CILEXETIL\HYDROCHLOROTHIAZIDE
     Indication: Hypertension
     Dosage: QD
     Route: 048
     Dates: start: 2021, end: 2021
  2. FENOFIBRATE\SIMVASTATIN [Suspect]
     Active Substance: FENOFIBRATE\SIMVASTATIN
     Route: 048
     Dates: start: 2021
  3. CONCOR AM [Concomitant]
     Dosage: UNK, QD / A TABLET EVERY 12 HOURS
     Route: 048
     Dates: start: 2021

REACTIONS (1)
  - Erectile dysfunction [Recovered/Resolved]

NARRATIVE: CASE EVENT DATE: 20210701
